FAERS Safety Report 8602635-9 (Version None)
Quarter: 2012Q3

REPORT INFORMATION
  Report Type: 
  Country: None (occurrence: None)
  Receive Date: 20120817
  Receipt Date: 20120809
  Transmission Date: 20120928
  Serious: Yes (Other)
  Sender: FDA-Public Use
  Company Number: US-BAYER-2012-082578

PATIENT
  Age: 47 Year
  Sex: Female

DRUGS (1)
  1. MAGNEVIST [Suspect]
     Indication: IMAGING PROCEDURE
     Dosage: UNK

REACTIONS (16)
  - JOINT RANGE OF MOTION DECREASED [None]
  - INJURY [None]
  - EMOTIONAL DISTRESS [None]
  - NERVOUSNESS [None]
  - PAIN [None]
  - DEPRESSION [None]
  - NEPHROGENIC SYSTEMIC FIBROSIS [None]
  - ANHEDONIA [None]
  - GENERAL PHYSICAL HEALTH DETERIORATION [None]
  - SKIN INDURATION [None]
  - ANXIETY [None]
  - DEFORMITY [None]
  - FEAR [None]
  - FEAR OF DEATH [None]
  - SCAR [None]
  - JOINT STIFFNESS [None]
